FAERS Safety Report 16237989 (Version 5)
Quarter: 2019Q2

REPORT INFORMATION
  Report Type: Spontaneous
  Country: US (occurrence: US)
  Receive Date: 20190425
  Receipt Date: 20190628
  Transmission Date: 20190711
  Serious: No
  Sender: FDA-Public Use
  Company Number: US-PFIZER INC-2019167676

PATIENT
  Age: 54 Year
  Sex: Female
  Weight: 76.2 kg

DRUGS (2)
  1. LYRICA [Suspect]
     Active Substance: PREGABALIN
     Indication: TRIGEMINAL NEURALGIA
     Dosage: 50 MG, 1X/DAY
     Dates: start: 20190402
  2. LYRICA [Suspect]
     Active Substance: PREGABALIN
     Dosage: 50 MG, 1X/DAY
     Dates: start: 20190402

REACTIONS (7)
  - Somnolence [Not Recovered/Not Resolved]
  - Hypersensitivity [Unknown]
  - Eye pain [Unknown]
  - Drug ineffective [Recovering/Resolving]
  - Sinusitis [Unknown]
  - Fatigue [Unknown]
  - Crying [Unknown]

NARRATIVE: CASE EVENT DATE: 20190402
